FAERS Safety Report 5363741-8 (Version None)
Quarter: 2007Q2

REPORT INFORMATION
  Report Type: 
  Country: None (occurrence: None)
  Receive Date: 20070530
  Receipt Date: 20070106
  Transmission Date: 20071010
  Serious: No
  Sender: FDA-Public Use
  Company Number: 2007PV027895

PATIENT
  Age: 77 Year
  Sex: Male
  Weight: 74.8435 kg

DRUGS (4)
  1. BYETTA [Suspect]
     Indication: DIABETES MELLITUS NON-INSULIN-DEPENDENT
     Dosage: 10 MCG;BID;SC ; 5 MCG;BID;SC
     Route: 058
     Dates: start: 20060819, end: 20060919
  2. BYETTA [Suspect]
     Indication: DIABETES MELLITUS NON-INSULIN-DEPENDENT
     Dosage: 10 MCG;BID;SC ; 5 MCG;BID;SC
     Route: 058
     Dates: start: 20060920
  3. AVANDIA [Concomitant]
  4. AMARYL [Concomitant]

REACTIONS (1)
  - BLOOD GLUCOSE INCREASED [None]
